FAERS Safety Report 16093947 (Version 1)
Quarter: 2019Q1

REPORT INFORMATION
  Report Type: Spontaneous
  Country: US (occurrence: US)
  Receive Date: 20190320
  Receipt Date: 20190320
  Transmission Date: 20190418
  Serious: Yes (Other)
  Sender: FDA-Public Use
  Company Number: US-BEH-2019100299

PATIENT
  Age: 53 Year
  Sex: Female

DRUGS (1)
  1. KCENTRA [Suspect]
     Active Substance: COAGULATION FACTOR IX HUMAN\COAGULATION FACTOR VII HUMAN\COAGULATION FACTOR X HUMAN\PROTEIN C\PROTEIN S HUMAN\PROTHROMBIN
     Indication: PRODUCT USED FOR UNKNOWN INDICATION
     Route: 065

REACTIONS (10)
  - Coagulopathy [Unknown]
  - Prothrombin level increased [Unknown]
  - Anaemia [Unknown]
  - Cholecystitis acute [Unknown]
  - Gastrointestinal haemorrhage [Unknown]
  - Pneumonia necrotising [Unknown]
  - Pleural effusion [Unknown]
  - International normalised ratio increased [Unknown]
  - Metabolic encephalopathy [Unknown]
  - Pulmonary embolism [Unknown]

NARRATIVE: CASE EVENT DATE: 20171210
